FAERS Safety Report 20430436 (Version 1)
Quarter: 2022Q1

REPORT INFORMATION
  Report Type: Report from Study
  Country: US (occurrence: US)
  Receive Date: 20220204
  Receipt Date: 20220204
  Transmission Date: 20220423
  Serious: Yes (Hospitalization)
  Sender: FDA-Public Use
  Company Number: 2019IN007398

PATIENT

DRUGS (5)
  1. ONCASPAR [Suspect]
     Active Substance: PEGASPARGASE
     Indication: Acute lymphocytic leukaemia
     Dosage: 3700 IU,
     Route: 042
     Dates: start: 20181204, end: 20190708
  2. RUXOLITINIB [Suspect]
     Active Substance: RUXOLITINIB
     Indication: Acute lymphocytic leukaemia
     Dosage: 75 MG, BID
     Route: 048
     Dates: start: 20181120, end: 20190714
  3. METHOTREXATE [Suspect]
     Active Substance: METHOTREXATE
     Indication: Acute lymphocytic leukaemia
     Dosage: 12 MG,
     Route: 037
     Dates: start: 20181120, end: 20190705
  4. METHOTREXATE [Suspect]
     Active Substance: METHOTREXATE
     Dosage: 220 MG,
     Route: 042
     Dates: start: 20190214, end: 20190715
  5. VINCRISTINE [Suspect]
     Active Substance: VINCRISTINE
     Indication: Acute lymphocytic leukaemia
     Dosage: 2 MG,
     Route: 042
     Dates: start: 20181204, end: 20190715

REACTIONS (4)
  - Pyrexia [Recovered/Resolved]
  - Dehydration [Recovered/Resolved]
  - Anaemia [Recovered/Resolved]
  - Thrombocytopenia [Recovered/Resolved]

NARRATIVE: CASE EVENT DATE: 20190718
